FAERS Safety Report 6845499-6 (Version None)
Quarter: 2010Q3

REPORT INFORMATION
  Report Type: 
  Country: None (occurrence: None)
  Receive Date: 20100715
  Receipt Date: 20071222
  Transmission Date: 20110219
  Serious: No
  Sender: FDA-Public Use
  Company Number: US-PFIZER INC-2007069288

PATIENT
  Sex: Female
  Weight: 64.4 kg

DRUGS (5)
  1. CHANTIX [Suspect]
     Indication: SMOKING CESSATION THERAPY
     Dates: start: 20070801
  2. HYDROCHLOROTHIAZIDE [Concomitant]
  3. VERELAN [Concomitant]
  4. FLEXERIL [Concomitant]
  5. TRAMADOL [Concomitant]

REACTIONS (1)
  - NAUSEA [None]
